FAERS Safety Report 6866187-6 (Version None)
Quarter: 2010Q3

REPORT INFORMATION
  Report Type: 
  Country: None (occurrence: None)
  Receive Date: 20100722
  Receipt Date: 20100713
  Transmission Date: 20110219
  Serious: Yes (Disabling)
  Sender: FDA-Public Use
  Company Number: MX-SANOFI-AVENTIS-2010SA037896

PATIENT
  Sex: Female

DRUGS (3)
  1. ARAVA [Suspect]
     Indication: RHEUMATOID ARTHRITIS
     Route: 065
     Dates: start: 20100201, end: 20100401
  2. KETOROLAC [Concomitant]
     Indication: TRIGEMINAL NEURALGIA
     Route: 048
     Dates: start: 20090101, end: 20100610
  3. CARBAMAZEPINE [Concomitant]
     Indication: TRIGEMINAL NEURALGIA
     Dates: start: 20090101

REACTIONS (6)
  - GAIT DISTURBANCE [None]
  - HYPOPHAGIA [None]
  - INSOMNIA [None]
  - OEDEMA PERIPHERAL [None]
  - SPEECH DISORDER [None]
  - TRIGEMINAL NEURALGIA [None]
